FAERS Safety Report 13695447 (Version 3)
Quarter: 2017Q3

REPORT INFORMATION
  Report Type: Spontaneous
  Country: US (occurrence: US)
  Receive Date: 20170627
  Receipt Date: 20170825
  Transmission Date: 20171127
  Serious: Yes (Hospitalization)
  Sender: FDA-Public Use
  Company Number: US-ACTELION-A-US2017-155282

PATIENT
  Age: 72 Year
  Sex: Female

DRUGS (2)
  1. ADEMPAS [Concomitant]
     Active Substance: RIOCIGUAT
     Dosage: 1.5 MG, TID
     Dates: start: 20170510
  2. OPSUMIT [Suspect]
     Active Substance: MACITENTAN
     Indication: PULMONARY ARTERIAL HYPERTENSION
     Dosage: 10 MG, QD
     Route: 048
     Dates: start: 20150324

REACTIONS (8)
  - Internal haemorrhage [Unknown]
  - Serum ferritin decreased [Unknown]
  - Mineral supplementation [Unknown]
  - Fatigue [Unknown]
  - Anaemia [Unknown]
  - Transfusion [Unknown]
  - Sluggishness [Unknown]
  - Dyspnoea [Unknown]
